FAERS Safety Report 12084881 (Version 3)
Quarter: 2016Q1

REPORT INFORMATION
  Report Type: Report from Study
  Country: FR (occurrence: FR)
  Receive Date: 20160217
  Receipt Date: 20160328
  Transmission Date: 20160526
  Serious: Yes (Other)
  Sender: FDA-Public Use
  Company Number: PHHY2013FR101829

PATIENT
  Age: 55 Year
  Sex: Male
  Weight: 74 kg

DRUGS (10)
  1. MYFORTIC [Suspect]
     Active Substance: MYCOPHENOLATE SODIUM
     Indication: IMMUNOSUPPRESSANT DRUG THERAPY
  2. GENTALIN [Concomitant]
     Indication: INFECTION
     Dosage: 180 MG, QD
     Route: 048
     Dates: start: 20130919, end: 20130924
  3. SOLUPRED [Concomitant]
     Active Substance: PREDNISOLONE
     Indication: RENAL TRANSPLANT
     Dosage: UNK
     Route: 065
     Dates: start: 20100820, end: 20110518
  4. SOLUPRED [Concomitant]
     Active Substance: PREDNISOLONE
     Indication: IMMUNOSUPPRESSION
     Dosage: UNK
     Route: 065
     Dates: start: 20130610, end: 20130801
  5. SOLUPRED [Concomitant]
     Active Substance: PREDNISOLONE
     Dosage: UNK
     Route: 065
     Dates: start: 20140306, end: 201405
  6. NEORAL [Suspect]
     Active Substance: CYCLOSPORINE
     Indication: IMMUNOSUPPRESSANT DRUG THERAPY
  7. SOLUPRED [Concomitant]
     Active Substance: PREDNISOLONE
     Dosage: UNK
     Route: 065
     Dates: start: 20131009, end: 20140213
  8. MYFORTIC [Suspect]
     Active Substance: MYCOPHENOLATE SODIUM
     Indication: RENAL TRANSPLANT
     Dosage: 720 MG, 2/J
     Route: 048
     Dates: start: 20100408, end: 20131009
  9. NEORAL [Suspect]
     Active Substance: CYCLOSPORINE
     Indication: RENAL TRANSPLANT
     Dosage: 60 MG, 2/J
     Route: 048
     Dates: start: 20101030, end: 20140123
  10. FOSFOCINE [Concomitant]
     Active Substance: FOSFOMYCIN
     Indication: INFECTION
     Dosage: 1 G, QD
     Route: 042
     Dates: start: 20130924, end: 20130926

REACTIONS (8)
  - Renal transplant failure [Unknown]
  - Nephropathy [Unknown]
  - Proteinuria [Recovered/Resolved]
  - Acute pulmonary oedema [Recovered/Resolved]
  - Kidney transplant rejection [Unknown]
  - Renal failure [Recovered/Resolved]
  - Inflammation [Not Recovered/Not Resolved]
  - Kidney fibrosis [Not Recovered/Not Resolved]

NARRATIVE: CASE EVENT DATE: 20130326
